FAERS Safety Report 22520938 (Version 1)
Quarter: 2023Q2

REPORT INFORMATION
  Report Type: Spontaneous
  Country: US (occurrence: None)
  Receive Date: 20230602
  Receipt Date: 20230602
  Transmission Date: 20230721
  Serious: Yes (Hospitalization)
  Sender: FDA-Public Use
  Company Number: None

PATIENT
  Sex: Male

DRUGS (1)
  1. NUWIQ [Suspect]
     Active Substance: ANTIHEMOPHILIC FACTOR, HUMAN RECOMBINANT
     Indication: Haemophilia
     Dosage: OTHER QUANTITY : 1500 UNITS;?FREQUENCY : AS NEEDED;?
     Route: 042
     Dates: start: 20230330

REACTIONS (2)
  - Central venous catheterisation [None]
  - Post procedural haemorrhage [None]

NARRATIVE: CASE EVENT DATE: 20230522
